FAERS Safety Report 4407160-7 (Version None)
Quarter: 2004Q3

REPORT INFORMATION
  Report Type: 
  Country: None (occurrence: None)
  Receive Date: 20040723
  Receipt Date: 20040723
  Transmission Date: 20050211
  Serious: Yes (Death, Life-Threatening, Hospitalization, Disabling, Congenital Anomaly)
  Sender: FDA-Public Use
  Company Number: None

PATIENT
  Age: 53 Year
  Sex: Male
  Weight: 79.4 kg

DRUGS (9)
  1. METFORMIN HCL [Suspect]
  2. LISINOPRIL [Concomitant]
  3. SIMVASTATIN [Concomitant]
  4. ASPIRIN [Concomitant]
  5. GLYBURIDE [Concomitant]
  6. GABAPENTIN [Concomitant]
  7. FLUOXETINE HCL [Concomitant]
  8. ZOLPIDEM TARTRATE [Concomitant]
  9. METFORMIN HCL [Concomitant]

REACTIONS (1)
  - DIARRHOEA [None]
